FAERS Safety Report 6814184-9 (Version None)
Quarter: 2010Q3

REPORT INFORMATION
  Report Type: 
  Country: None (occurrence: None)
  Receive Date: 20100702
  Receipt Date: 20100217
  Transmission Date: 20110219
  Serious: Yes (Hospitalization, Other)
  Sender: FDA-Public Use
  Company Number: US-ASTRAZENECA-2009UW20591

PATIENT
  Age: 14134 Day
  Sex: Male

DRUGS (12)
  1. SEROQUEL [Suspect]
     Dosage: 100 MG-600 MG
     Route: 048
     Dates: start: 20000526
  2. LITHIUM CARBONATE [Concomitant]
     Dosage: 300 MG-1200 MG
     Dates: start: 20000526
  3. TEMAZEPAM [Concomitant]
     Dates: start: 20000526
  4. TRAZODONE HYDROCHLORIDE [Concomitant]
     Dates: start: 20000403
  5. EFFEXOR XR [Concomitant]
     Dates: start: 20000526
  6. TRIFLUOPERAZINE [Concomitant]
     Dates: start: 20000526
  7. DEPAKOTE [Concomitant]
     Dosage: 500 MG 4 TABLETES PO QHS
     Route: 048
     Dates: start: 20060719
  8. ZOCOR [Concomitant]
     Dates: start: 20060619
  9. WELLBUTRIN [Concomitant]
     Dates: start: 20060719
  10. LEXAPRO [Concomitant]
     Dates: start: 20060719
  11. ACTOS [Concomitant]
     Dates: start: 20060719
  12. GLUCOPHAGE [Concomitant]
     Dates: start: 20060719

REACTIONS (4)
  - DIABETES MELLITUS INADEQUATE CONTROL [None]
  - KETOACIDOSIS [None]
  - PANCREATITIS [None]
  - TYPE 1 DIABETES MELLITUS [None]
